FAERS Safety Report 12914976 (Version 1)
Quarter: 2016Q4

REPORT INFORMATION
  Report Type: Spontaneous
  Country: US (occurrence: US)
  Receive Date: 20161106
  Receipt Date: 20161106
  Transmission Date: 20170207
  Serious: No
  Sender: FDA-Public Use
  Company Number: US-RELYPSA-RLY2016002406

PATIENT
  Sex: Male

DRUGS (23)
  1. NEURONTIN [Concomitant]
     Active Substance: GABAPENTIN
  2. ALBUTEROL SULFATE. [Concomitant]
     Active Substance: ALBUTEROL SULFATE
  3. PANTOPRAZOLE SODIUM. [Concomitant]
     Active Substance: PANTOPRAZOLE SODIUM
  4. LORTAB [Concomitant]
     Active Substance: ACETAMINOPHEN\HYDROCODONE BITARTRATE
  5. VITAMIN D3 [Concomitant]
     Active Substance: CHOLECALCIFEROL
  6. CLONAZEPAM. [Concomitant]
     Active Substance: CLONAZEPAM
  7. VELTASSA [Suspect]
     Active Substance: PATIROMER
     Indication: HYPERKALAEMIA
     Dosage: 8.4 G, QD
     Route: 048
     Dates: start: 20160706, end: 2016
  8. NEPHRO-VITE [Concomitant]
  9. COREG [Concomitant]
     Active Substance: CARVEDILOL
  10. GLUCAGON EMERGENCY KIT [Concomitant]
     Active Substance: GLUCAGON
  11. RENVELA [Concomitant]
     Active Substance: SEVELAMER CARBONATE
  12. TESTOSTERONE ENANTATE [Concomitant]
     Active Substance: TESTOSTERONE
  13. FISH OIL [Concomitant]
     Active Substance: FISH OIL
  14. VYTORIN [Concomitant]
     Active Substance: EZETIMIBE\SIMVASTATIN
  15. ASPIRIN. [Concomitant]
     Active Substance: ASPIRIN
  16. REGLAN [Concomitant]
     Active Substance: METOCLOPRAMIDE HYDROCHLORIDE
  17. ALPHAGAN P [Concomitant]
     Active Substance: BRIMONIDINE TARTRATE
  18. LUMIGAN [Concomitant]
     Active Substance: BIMATOPROST
  19. MINOXIDIL. [Concomitant]
     Active Substance: MINOXIDIL
  20. NOVOLOG [Concomitant]
     Active Substance: INSULIN ASPART
  21. ZANTAC [Concomitant]
     Active Substance: RANITIDINE HYDROCHLORIDE
  22. PLAVIX [Concomitant]
     Active Substance: CLOPIDOGREL BISULFATE
  23. SENSIPAR [Concomitant]
     Active Substance: CINACALCET HYDROCHLORIDE

REACTIONS (2)
  - Constipation [Unknown]
  - Drug interaction [Unknown]

NARRATIVE: CASE EVENT DATE: 2016
